FAERS Safety Report 6822822-X (Version None)
Quarter: 2010Q3

REPORT INFORMATION
  Report Type: 
  Country: None (occurrence: None)
  Receive Date: 20100706
  Receipt Date: 20100706
  Transmission Date: 20110219
  Serious: Yes (Life-Threatening, Hospitalization)
  Sender: FDA-Public Use
  Company Number: None

PATIENT
  Age: 38 Year
  Sex: Female
  Weight: 72.5755 kg

DRUGS (1)
  1. PRISTIQ [Suspect]
     Indication: DEPRESSION

REACTIONS (3)
  - OPERATIVE HAEMORRHAGE [None]
  - PLATELET DISORDER [None]
  - POST PROCEDURAL HAEMORRHAGE [None]
